FAERS Safety Report 23464305 (Version 1)
Quarter: 2024Q1

REPORT INFORMATION
  Report Type: Spontaneous
  Country: IT (occurrence: IT)
  Receive Date: 20240201
  Receipt Date: 20240201
  Transmission Date: 20240410
  Serious: Yes (Other)
  Sender: FDA-Public Use
  Company Number: IT-ASTELLAS-2022EU000010

PATIENT
  Age: 37 Year
  Sex: Male

DRUGS (16)
  1. METHOTREXATE [Suspect]
     Active Substance: METHOTREXATE
     Indication: Diffuse large B-cell lymphoma
     Dosage: UNK, UNK, UNKNOWN FREQ.
     Route: 065
  2. VINCRISTINE [Suspect]
     Active Substance: VINCRISTINE
     Indication: Diffuse large B-cell lymphoma
     Dosage: UNK, UNK, UNKNOWN FREQ.
     Route: 065
     Dates: start: 20220324, end: 20220329
  3. VINCRISTINE [Suspect]
     Active Substance: VINCRISTINE
     Indication: Diffuse large B-cell lymphoma
     Dosage: UNK, UNKNOWN FREQ.
     Route: 065
     Dates: start: 20220502, end: 20220531
  4. ETOPOSIDE PHOSPHATE [Suspect]
     Active Substance: ETOPOSIDE PHOSPHATE
     Indication: Diffuse large B-cell lymphoma
     Dosage: UNK, UNK, UNKNOWN FREQ.
     Route: 065
     Dates: start: 20220324, end: 20220329
  5. BENDAMUSTINE HYDROCHLORIDE [Suspect]
     Active Substance: BENDAMUSTINE HYDROCHLORIDE
     Indication: Diffuse large B-cell lymphoma
     Dosage: TIME INTERVAL: CYCLICAL: UNK, UNK, CYCLIC
     Route: 042
  6. POLATUZUMAB VEDOTIN [Suspect]
     Active Substance: POLATUZUMAB VEDOTIN
     Indication: Diffuse large B-cell lymphoma
     Dosage: UNK, UNK, UNKNOWN FREQ.
     Route: 065
  7. PREDNISONE [Suspect]
     Active Substance: PREDNISONE
     Indication: Diffuse large B-cell lymphoma
     Dosage: UNK, UNK, UNKNOWN FREQ.
     Route: 065
     Dates: start: 20220324, end: 20220329
  8. DOXORUBICIN [Suspect]
     Active Substance: DOXORUBICIN
     Indication: Diffuse large B-cell lymphoma
     Dosage: UNK UNK, UNKNOWN FREQ.
     Route: 065
     Dates: start: 20220324, end: 20220329
  9. DOXORUBICIN [Suspect]
     Active Substance: DOXORUBICIN
     Indication: Diffuse large B-cell lymphoma
     Dosage: DOSAGE TEXT: UNK UNK, UNKNOWN FREQ.
     Route: 065
     Dates: start: 20220502, end: 20220531
  10. CYCLOPHOSPHAMIDE [Suspect]
     Active Substance: CYCLOPHOSPHAMIDE
     Indication: Diffuse large B-cell lymphoma
     Dosage: UNK, UNK, UNKNOWN FREQ.
     Route: 065
     Dates: start: 20220324, end: 20220329
  11. CYCLOPHOSPHAMIDE [Suspect]
     Active Substance: CYCLOPHOSPHAMIDE
     Indication: Diffuse large B-cell lymphoma
     Dosage: UNK, UNK, UNKNOWN FREQ.
     Route: 065
     Dates: start: 20220502, end: 20220531
  12. IFOSFAMIDE [Suspect]
     Active Substance: IFOSFAMIDE
     Indication: Diffuse large B-cell lymphoma
     Dosage: UNK UNK, UNKNOWN FREQ.
     Route: 065
     Dates: start: 20220617, end: 20220624
  13. CYTARABINE [Suspect]
     Active Substance: CYTARABINE
     Indication: Diffuse large B-cell lymphoma
     Dosage: UNK UNK, UNKNOWN FREQ.
     Route: 065
     Dates: start: 20220617, end: 20220624
  14. RITUXIMAB [Suspect]
     Active Substance: RITUXIMAB
     Indication: Diffuse large B-cell lymphoma
     Dosage: UNK UNK, UNKNOWN FREQ.
     Route: 042
     Dates: start: 20220324, end: 20220329
  15. RITUXIMAB [Suspect]
     Active Substance: RITUXIMAB
     Indication: Diffuse large B-cell lymphoma
     Dosage: UNK UNK, UNKNOWN FREQ.
     Route: 042
     Dates: start: 20220617, end: 20220624
  16. RITUXIMAB [Suspect]
     Active Substance: RITUXIMAB
     Indication: Diffuse large B-cell lymphoma
     Dosage: UNK UNK, UNKNOWN FREQ.
     Route: 042
     Dates: start: 20220502, end: 20220531

REACTIONS (3)
  - Malignant neoplasm progression [Unknown]
  - Blood lactate dehydrogenase increased [Unknown]
  - Off label use [Unknown]
